FAERS Safety Report 6020300-1 (Version None)
Quarter: 2008Q4

REPORT INFORMATION
  Report Type: 
  Country: None (occurrence: None)
  Receive Date: 20081223
  Receipt Date: 20081223
  Transmission Date: 20090506
  Serious: Yes (Hospitalization)
  Sender: FDA-Public Use
  Company Number: None

PATIENT
  Age: 67 Year
  Sex: Female
  Weight: 97.977 kg

DRUGS (1)
  1. METOPROLOL SUCCINATE [Suspect]
     Indication: POSTOPERATIVE CARE
     Dosage: 50MG 1-PER DAY-  (DURATION: ABOUT A MONTH)
     Dates: start: 20081110, end: 20081212

REACTIONS (5)
  - ABDOMINAL DISCOMFORT [None]
  - BLOOD PRESSURE INCREASED [None]
  - DIZZINESS [None]
  - EYE DISORDER [None]
  - MALAISE [None]
